FAERS Safety Report 15428969 (Version 2)
Quarter: 2019Q3

REPORT INFORMATION
  Report Type: Report from Study
  Country: US (occurrence: US)
  Receive Date: 20180926
  Receipt Date: 20190710
  Transmission Date: 20191004
  Serious: Yes (Other)
  Sender: FDA-Public Use
  Company Number: PHEH2018US039257

PATIENT
  Sex: Male

DRUGS (1)
  1. ENTRESTO [Suspect]
     Active Substance: SACUBITRIL\VALSARTAN
     Indication: CARDIAC FAILURE
     Dosage: 1 DF, BID (97MG OF SACUBITRIL/ 103 MG OF VALSARTAN)
     Route: 048

REACTIONS (5)
  - Vascular occlusion [Unknown]
  - Arterial occlusive disease [Recovering/Resolving]
  - Blood blister [Unknown]
  - Blood glucose fluctuation [Unknown]
  - Skin fissures [Unknown]
